FAERS Safety Report 9178829 (Version 1)
Quarter: 2013Q1

REPORT INFORMATION
  Report Type: Spontaneous
  Country: US (occurrence: US)
  Receive Date: 20130321
  Receipt Date: 20130321
  Transmission Date: 20140127
  Serious: No
  Sender: FDA-Public Use
  Company Number: US-BAYER-2013-033743

PATIENT
  Age: 72 Year
  Sex: Female
  Weight: 69.39 kg

DRUGS (7)
  1. BAYER ADVANCED ASPIRIN EXTRA STRENGTH [Suspect]
     Indication: PAIN
     Dosage: 2 DF, PRN
     Route: 048
     Dates: start: 201302, end: 201302
  2. BAYER ADVANCED ASPIRIN EXTRA STRENGTH [Suspect]
     Indication: PAIN IN EXTREMITY
  3. BAYER GENUINE ASPIRIN ORIGINAL STRENGTH [Suspect]
     Indication: PAIN IN EXTREMITY
     Dosage: 2 DF, PRN
     Route: 048
  4. ALEVE [Suspect]
     Indication: PAIN IN EXTREMITY
     Dosage: 2 DF, UNK
     Route: 048
  5. CHOLESTEROL CARE VITAMIN [Concomitant]
  6. OMEGA-3 FATTY ACIDS [Concomitant]
  7. GLUCOSAMINE + CHONDROITIN [Concomitant]

REACTIONS (1)
  - Drug ineffective [None]
